FAERS Safety Report 10079330 (Version 2)
Quarter: 2014Q2

REPORT INFORMATION
  Report Type: Spontaneous
  Country: BR (occurrence: BR)
  Receive Date: 20140415
  Receipt Date: 20140515
  Transmission Date: 20141212
  Serious: Yes (Other)
  Sender: FDA-Public Use
  Company Number: PHHY2014BR044714

PATIENT
  Sex: Female
  Weight: 60 kg

DRUGS (3)
  1. VOLTAREN [Suspect]
     Indication: ENDOMETRIOSIS
     Dosage: 50 MG, DAILY
     Route: 054
  2. VOLTAREN [Suspect]
     Indication: PAIN
  3. ANGELIQ [Concomitant]
     Indication: MENOPAUSE
     Dosage: 1 DF, QD
     Route: 048

REACTIONS (8)
  - Renal disorder [Unknown]
  - Hypothyroidism [Not Recovered/Not Resolved]
  - Exostosis [Recovered/Resolved]
  - Spinal disorder [Recovered/Resolved]
  - Spinal pain [Recovered/Resolved]
  - Labyrinthitis [Not Recovered/Not Resolved]
  - Eye pain [Recovered/Resolved]
  - Anxiety [Not Recovered/Not Resolved]
